FAERS Safety Report 11739068 (Version 1)
Quarter: 2015Q4

REPORT INFORMATION
  Report Type: Spontaneous
  Country: US (occurrence: US)
  Receive Date: 20151110
  Receipt Date: 20151110
  Transmission Date: 20160304
  Serious: No
  Sender: FDA-Public Use
  Company Number: US-ELI_LILLY_AND_COMPANY-US201208006916

PATIENT
  Age: 83 Year
  Sex: Female

DRUGS (2)
  1. FORTEO [Suspect]
     Active Substance: TERIPARATIDE
     Indication: OSTEOPOROSIS
     Dosage: 20 UG, QD
     Route: 065
     Dates: start: 20120723
  2. ADVAIR HFA [Concomitant]
     Active Substance: FLUTICASONE PROPIONATE\SALMETEROL XINAFOATE

REACTIONS (11)
  - Asthma [Unknown]
  - Feeling abnormal [Not Recovered/Not Resolved]
  - Nasal congestion [Unknown]
  - Dizziness [Not Recovered/Not Resolved]
  - Cough [Unknown]
  - Drug dose omission [Recovered/Resolved]
  - Muscle spasms [Unknown]
  - Viral infection [Unknown]
  - Nausea [Unknown]
  - Hypersensitivity [Unknown]
  - Medication error [Unknown]

NARRATIVE: CASE EVENT DATE: 201207
